FAERS Safety Report 16503499 (Version 7)
Quarter: 2024Q2

REPORT INFORMATION
  Report Type: Spontaneous
  Country: JP (occurrence: JP)
  Receive Date: 20190701
  Receipt Date: 20240401
  Transmission Date: 20240716
  Serious: Yes (Life-Threatening, Hospitalization, Other)
  Sender: FDA-Public Use
  Company Number: JP-MLMSERVICE-20190624-1819285-1

PATIENT
  Age: 77 Year
  Sex: Female
  Weight: 45 kg

DRUGS (6)
  1. TAXOTERE [Suspect]
     Active Substance: DOCETAXEL
     Indication: Metastases to bone
     Dosage: 40 MG/M2, Q3W, DAY 1
     Route: 041
  2. TAXOTERE [Suspect]
     Active Substance: DOCETAXEL
     Indication: Metastases to bone marrow
     Dosage: 16 MG/M2 (2ND CYCLE)
     Route: 041
  3. TAXOTERE [Suspect]
     Active Substance: DOCETAXEL
     Indication: Metastatic gastric cancer
  4. GIMERACIL\OTERACIL\TEGAFUR [Suspect]
     Active Substance: GIMERACIL\OTERACIL POTASSIUM\TEGAFUR
     Indication: Metastases to bone
     Dosage: 80 MG/M2, QCY DAY 1-14, Q3 WEEKS
     Route: 065
  5. GIMERACIL\OTERACIL\TEGAFUR [Suspect]
     Active Substance: GIMERACIL\OTERACIL POTASSIUM\TEGAFUR
     Indication: Metastases to bone marrow
     Dosage: 32 MG/M2 (2ND CYCLE)
     Route: 065
  6. GIMERACIL\OTERACIL\TEGAFUR [Suspect]
     Active Substance: GIMERACIL\OTERACIL POTASSIUM\TEGAFUR
     Indication: Metastatic gastric cancer

REACTIONS (4)
  - Haematotoxicity [Recovered/Resolved]
  - Sepsis [Recovered/Resolved]
  - Neutropenia [Recovered/Resolved]
  - Loss of personal independence in daily activities [Recovered/Resolved]
